FAERS Safety Report 4987676-5 (Version None)
Quarter: 2006Q2

REPORT INFORMATION
  Report Type: 
  Country: None (occurrence: None)
  Receive Date: 20060428
  Receipt Date: 20060428
  Transmission Date: 20061013
  Serious: Yes (Other)
  Sender: FDA-Public Use
  Company Number: None

PATIENT
  Sex: Male
  Weight: 70 kg

DRUGS (1)
  1. FENTANYL [Suspect]
     Indication: PAIN
     Dosage: 50 MCG EVER 3 DAYS TRANSDERMAL
     Route: 062
     Dates: start: 20060301, end: 20060427

REACTIONS (4)
  - DRUG INEFFECTIVE [None]
  - INCORRECT DOSE ADMINISTERED [None]
  - PHARMACEUTICAL PRODUCT COMPLAINT [None]
  - TREATMENT NONCOMPLIANCE [None]
